FAERS Safety Report 14297688 (Version 1)
Quarter: 2017Q4

REPORT INFORMATION
  Report Type: Spontaneous
  Country: GB (occurrence: GB)
  Receive Date: 20171218
  Receipt Date: 20171218
  Transmission Date: 20180321
  Serious: Yes (Disabling, Other)
  Sender: FDA-Public Use
  Company Number: GB-ABBVIE-17S-167-2195768-00

PATIENT

DRUGS (1)
  1. VALPROATE SODIUM. [Suspect]
     Active Substance: VALPROATE SODIUM
     Indication: MATERNAL EXPOSURE TIMING UNSPECIFIED
     Route: 064

REACTIONS (10)
  - Speech disorder [Unknown]
  - Deformity [Unknown]
  - Developmental delay [Unknown]
  - Foetal exposure during pregnancy [Unknown]
  - Disability [Unknown]
  - Autism spectrum disorder [Unknown]
  - Walking disability [Unknown]
  - Brain injury [Unknown]
  - Memory impairment [Unknown]
  - Language disorder [Unknown]
